FAERS Safety Report 4500440-6 (Version None)
Quarter: 2004Q3

REPORT INFORMATION
  Report Type: 
  Country: None (occurrence: None)
  Receive Date: 20040928
  Receipt Date: 20040729
  Transmission Date: 20050211
  Serious: No
  Sender: FDA-Public Use
  Company Number: 04P-163-0268398-00

PATIENT
  Age: 54 Year
  Sex: Female
  Weight: 61.2356 kg

DRUGS (8)
  1. HUMIRA [Suspect]
     Indication: RHEUMATOID ARTHRITIS
     Dosage: 40 MG, 1 IN 2 WK, SUBCUTANEOUS
     Route: 058
     Dates: start: 20040728
  2. CONJUGATED ESTROGEN [Concomitant]
  3. TOCOPHEROL CONCENTRATE CAP [Concomitant]
  4. ERGOCALCIFEROL [Concomitant]
  5. RISEDRONATE SODIUM [Concomitant]
  6. CALCIUM [Concomitant]
  7. MILK THISTLE [Concomitant]
  8. POTASSIUM [Concomitant]

REACTIONS (1)
  - INJECTION SITE BURNING [None]
